FAERS Safety Report 20864608 (Version 14)
Quarter: 2024Q3

REPORT INFORMATION
  Report Type: Report from Study
  Country: IT (occurrence: IT)
  Receive Date: 20220524
  Receipt Date: 20240709
  Transmission Date: 20241017
  Serious: No
  Sender: ROCHE
  Company Number: IT-ROCHE-3101130

PATIENT
  Age: 51 Year
  Sex: Female
  Weight: 48.0 kg

DRUGS (42)
  1. OCRELIZUMAB [Suspect]
     Active Substance: OCRELIZUMAB
     Indication: Relapsing-remitting multiple sclerosis
     Dosage: 2ND INITIAL DOSE WAS ON 12/OCT/2020
     Route: 042
     Dates: start: 20200928, end: 20200928
  2. OCRELIZUMAB [Suspect]
     Active Substance: OCRELIZUMAB
     Route: 042
     Dates: start: 20210414, end: 20210414
  3. OCRELIZUMAB [Suspect]
     Active Substance: OCRELIZUMAB
     Route: 042
     Dates: start: 20221121, end: 20221121
  4. OCRELIZUMAB [Suspect]
     Active Substance: OCRELIZUMAB
     Route: 042
     Dates: start: 20211026, end: 20211026
  5. OCRELIZUMAB [Suspect]
     Active Substance: OCRELIZUMAB
     Route: 042
     Dates: start: 20220518, end: 20220518
  6. OCRELIZUMAB [Suspect]
     Active Substance: OCRELIZUMAB
     Route: 042
     Dates: start: 20230511, end: 20230511
  7. OCRELIZUMAB [Suspect]
     Active Substance: OCRELIZUMAB
     Route: 042
     Dates: start: 20231115, end: 20231115
  8. OCRELIZUMAB [Suspect]
     Active Substance: OCRELIZUMAB
     Route: 042
     Dates: start: 20240513, end: 20240513
  9. OCRELIZUMAB [Suspect]
     Active Substance: OCRELIZUMAB
     Route: 042
  10. METHYLPREDNISOLONE [Concomitant]
     Active Substance: METHYLPREDNISOLONE
     Dosage: 21/NOV/2022, 11/MAY/2023, 15/NOV/2023, 13/MAY/2024? FREQUENCY TEXT:ONCE BEFORE INFUSION
     Dates: start: 20220518, end: 20220518
  11. CETIRIZINE [Concomitant]
     Active Substance: CETIRIZINE HYDROCHLORIDE
     Dosage: 21/NOV/2022, 11/MAY/2023,15/NOV/2023, 13/MAY/2024? FREQUENCY TEXT:ONCE BEFORE INFUSION
     Route: 048
     Dates: start: 20220518, end: 20220518
  12. ACETAMINOPHEN [Concomitant]
     Active Substance: ACETAMINOPHEN
     Route: 048
     Dates: start: 20220211, end: 20220217
  13. ACETAMINOPHEN [Concomitant]
     Active Substance: ACETAMINOPHEN
     Dosage: FREQUENCY TEXT:ONCE BEFORE INFUSION
     Route: 048
     Dates: start: 20220518, end: 20220518
  14. ACETAMINOPHEN [Concomitant]
     Active Substance: ACETAMINOPHEN
     Dosage: FREQUENCY TEXT:ONCE BEFORE INFUSION
     Route: 048
     Dates: start: 20220704, end: 20220705
  15. ACETAMINOPHEN [Concomitant]
     Active Substance: ACETAMINOPHEN
     Dosage: FREQUENCY TEXT:ONCE BEFORE INFUSION
     Route: 048
     Dates: start: 20221211, end: 20221223
  16. ACETAMINOPHEN [Concomitant]
     Active Substance: ACETAMINOPHEN
     Dosage: FREQUENCY TEXT:ONCE BEFORE INFUSION
     Route: 048
     Dates: start: 20230511, end: 20230511
  17. ACETAMINOPHEN [Concomitant]
     Active Substance: ACETAMINOPHEN
     Dosage: FREQUENCY TEXT:ONCE BEFORE INFUSION
     Route: 048
     Dates: start: 20221121, end: 20221121
  18. ACETAMINOPHEN [Concomitant]
     Active Substance: ACETAMINOPHEN
     Dosage: 13/MAY/2024? FREQUENCY TEXT:ONCE BEFORE INFUSION
     Route: 048
     Dates: start: 20231115, end: 20231115
  19. MODERNA COVID-19 VACCINE [Concomitant]
     Active Substance: ELASOMERAN
     Indication: Prophylaxis
     Dosage: 1 OTHER? FREQUENCY TEXT:OTHER
     Route: 030
     Dates: start: 20220121, end: 20220121
  20. OMEPRAZOLE [Concomitant]
     Active Substance: OMEPRAZOLE
     Dates: start: 20220128, end: 20220204
  21. PANTOPRAZOLE [Concomitant]
     Active Substance: PANTOPRAZOLE
     Indication: Prophylaxis
     Route: 048
     Dates: start: 20220201, end: 20220206
  22. PANTOPRAZOLE [Concomitant]
     Active Substance: PANTOPRAZOLE
     Route: 048
     Dates: start: 20221013
  23. AZITHROMYCIN [Concomitant]
     Active Substance: AZITHROMYCIN
     Dates: start: 20220211, end: 20220217
  24. INFLUENZA VIRUS VACCINE [Concomitant]
     Active Substance: INFLUENZA VIRUS VACCINE
     Indication: Prophylaxis
     Dosage: 1 OTHER? FREQUENCY TEXT:OTHER
     Route: 030
     Dates: start: 20231104, end: 20231104
  25. VELAMOX [AMOXICILLIN] [Concomitant]
     Route: 048
     Dates: start: 202311, end: 202311
  26. ARCOXIA [Concomitant]
     Active Substance: ETORICOXIB
     Route: 048
     Dates: start: 20220201, end: 20220206
  27. ARCOXIA [Concomitant]
     Active Substance: ETORICOXIB
     Route: 048
     Dates: start: 20220128, end: 20220204
  28. CLARITHROMYCIN [Concomitant]
     Active Substance: CLARITHROMYCIN
     Route: 048
     Dates: start: 20221220, end: 20221227
  29. THIOCOLCHICOSIDE [Concomitant]
     Active Substance: THIOCOLCHICOSIDE
     Route: 048
     Dates: start: 20220313, end: 20220320
  30. NEURONORM [Concomitant]
     Indication: Adverse event
     Route: 048
     Dates: start: 20230311, end: 20230311
  31. NEURONORM [Concomitant]
     Route: 048
     Dates: start: 20230414
  32. VOLTAREN [Concomitant]
     Active Substance: DICLOFENAC SODIUM
     Route: 048
     Dates: start: 20220428, end: 20220505
  33. METRONIDAZOLE [Concomitant]
     Active Substance: METRONIDAZOLE
     Dates: start: 20240110
  34. CORTISON CHEMICETINA [Concomitant]
     Dosage: 2 OTHER,
     Route: 047
     Dates: start: 20220404, end: 20220414
  35. CORTISON CHEMICETINA [Concomitant]
     Dosage: 2 OTHER,
     Route: 047
     Dates: start: 20230528, end: 20230607
  36. DICLOFENAC SODIUM [Concomitant]
     Active Substance: DICLOFENAC\DICLOFENAC SODIUM
     Route: 062
     Dates: start: 20230520, end: 20230605
  37. TOBRADEX [Concomitant]
     Active Substance: DEXAMETHASONE\TOBRAMYCIN
     Dosage: 1 OTHER
     Route: 047
     Dates: start: 20230626, end: 20230706
  38. ETORICOXIB [Concomitant]
     Active Substance: ETORICOXIB
     Dosage: 01-FEB-2022
     Route: 048
     Dates: start: 20220128, end: 20220204
  39. AMOXICILLIN [Concomitant]
     Active Substance: AMOXICILLIN
     Dates: start: 202312, end: 202312
  40. AMOXICILLIN [Concomitant]
     Active Substance: AMOXICILLIN
     Dates: start: 20240404, end: 20240407
  41. NIMESULIDE [Concomitant]
     Active Substance: NIMESULIDE
     Dosage: OTHER
     Route: 048
     Dates: start: 20220211, end: 20220217
  42. AUGMENTIN [Concomitant]
     Active Substance: AMOXICILLIN\CLAVULANATE POTASSIUM
     Route: 048

REACTIONS (2)
  - Sciatica [Not Recovered/Not Resolved]
  - COVID-19 [Recovered/Resolved]

NARRATIVE: CASE EVENT DATE: 20220211
